FAERS Safety Report 8925146 (Version 1)
Quarter: 2012Q4

REPORT INFORMATION
  Report Type: Spontaneous
  Country: FR (occurrence: None)
  Receive Date: 20121116
  Receipt Date: 20121116
  Transmission Date: 20130627
  Serious: Yes (Death)
  Sender: FDA-Public Use
  Company Number: ADR-2012-02076

PATIENT

DRUGS (1)
  1. BACLOFEN [Suspect]
     Indication: DYSAUTONOMIA

REACTIONS (1)
  - Death [None]
